FAERS Safety Report 21288285 (Version 1)
Quarter: 2022Q3

REPORT INFORMATION
  Report Type: Spontaneous
  Country: US (occurrence: US)
  Receive Date: 20220902
  Receipt Date: 20220902
  Transmission Date: 20221026
  Serious: No
  Sender: FDA-Public Use
  Company Number: US-ABBVIE-22K-163-4466857-00

PATIENT
  Sex: Male
  Weight: 93.524 kg

DRUGS (4)
  1. VENCLEXTA [Suspect]
     Active Substance: VENETOCLAX
     Indication: Chronic lymphocytic leukaemia
     Dosage: REPORTED STRENGTH AS 400MG
     Route: 048
     Dates: start: 20220427
  2. GAZYVA [Suspect]
     Active Substance: OBINUTUZUMAB
     Indication: Chronic lymphocytic leukaemia
     Route: 042
     Dates: start: 20220427
  3. VALACYCLOVIR [Concomitant]
     Active Substance: VALACYCLOVIR HYDROCHLORIDE
     Indication: Infection prophylaxis
     Route: 048
     Dates: start: 20220427
  4. BACTRIM [Concomitant]
     Active Substance: SULFAMETHOXAZOLE\TRIMETHOPRIM
     Indication: Chronic lymphocytic leukaemia
     Dosage: TAKES 1 TAB EVERY MONDAY, WEDNESDAY AND FRIDAY
     Route: 048
     Dates: start: 20220427

REACTIONS (3)
  - Eye disorder [Not Recovered/Not Resolved]
  - Eye swelling [Not Recovered/Not Resolved]
  - Vision blurred [Not Recovered/Not Resolved]

NARRATIVE: CASE EVENT DATE: 20220101
